FAERS Safety Report 7380045-2 (Version None)
Quarter: 2011Q1

REPORT INFORMATION
  Report Type: 
  Country: None (occurrence: None)
  Receive Date: 20110329
  Receipt Date: 20110321
  Transmission Date: 20110831
  Serious: Yes (Hospitalization)
  Sender: FDA-Public Use
  Company Number: FR-SANOFI-AVENTIS-2011SA017760

PATIENT
  Age: 73 Year
  Sex: Female
  Weight: 90 kg

DRUGS (12)
  1. AMOXICILLIN [Suspect]
     Dosage: 6 TIMES PER DAY
     Route: 042
     Dates: start: 20110110, end: 20110114
  2. ZOVIRAX [Suspect]
     Route: 042
     Dates: start: 20110111, end: 20110113
  3. ASPEGIC 325 [Concomitant]
     Route: 065
  4. HALDOL [Concomitant]
     Route: 065
  5. ESOMEPRAZOLE [Concomitant]
     Route: 065
     Dates: end: 20110112
  6. BACTRIM [Concomitant]
     Route: 048
     Dates: end: 20110119
  7. CALCIPARINE [Concomitant]
     Route: 065
  8. CLAFORAN [Suspect]
     Route: 042
     Dates: start: 20110110, end: 20110115
  9. CALCITONIN [Concomitant]
     Route: 051
  10. HYPNOVEL [Concomitant]
     Route: 051
  11. CLAFORAN [Suspect]
     Route: 042
     Dates: start: 20110116, end: 20110119
  12. LOXEN [Concomitant]
     Route: 065

REACTIONS (2)
  - CRYSTAL URINE [None]
  - RENAL FAILURE ACUTE [None]
